FAERS Safety Report 20735363 (Version 2)
Quarter: 2022Q2

REPORT INFORMATION
  Report Type: Spontaneous
  Country: US (occurrence: US)
  Receive Date: 20220421
  Receipt Date: 20220511
  Transmission Date: 20220721
  Serious: Yes (Other)
  Sender: FDA-Public Use
  Company Number: US-PFIZER INC-2021659196

PATIENT
  Age: 56 Year
  Sex: Female
  Weight: 127.01 kg

DRUGS (1)
  1. PHENYTOIN SODIUM [Suspect]
     Active Substance: PHENYTOIN SODIUM
     Indication: Seizure
     Dosage: 100 MG, 2X/DAY, 3 CAPSULES TWICE A DAY BY MOUTH
     Route: 048

REACTIONS (4)
  - Seizure [Unknown]
  - Drug ineffective [Unknown]
  - Toxicity to various agents [Unknown]
  - Malabsorption [Unknown]
